FAERS Safety Report 24293632 (Version 1)
Quarter: 2024Q3

REPORT INFORMATION
  Report Type: Spontaneous
  Country: US (occurrence: None)
  Receive Date: 20240906
  Receipt Date: 20240906
  Transmission Date: 20241016
  Serious: No
  Sender: DOMPE FARMACEUTICI
  Company Number: US-FARMAPROD-202308-202402-0454

PATIENT

DRUGS (1)
  1. OXERVATE [Suspect]
     Active Substance: CENEGERMIN-BKBJ
     Indication: Neurotrophic keratopathy
     Route: 047
     Dates: start: 20240207, end: 20240207

REACTIONS (4)
  - Eyelid oedema [Unknown]
  - Erythema of eyelid [Unknown]
  - Eyelid margin crusting [Unknown]
  - Nasal mucosal blistering [Unknown]
